FAERS Safety Report 4264013-5 (Version None)
Quarter: 2004Q1

REPORT INFORMATION
  Report Type: 
  Country: None (occurrence: None)
  Receive Date: 20040102
  Receipt Date: 20031219
  Transmission Date: 20041129
  Serious: Yes (Hospitalization)
  Sender: FDA-Public Use
  Company Number: FR_031203338

PATIENT
  Age: 67 Year
  Sex: Male

DRUGS (4)
  1. GEMZAR [Suspect]
     Indication: LUNG NEOPLASM MALIGNANT
     Dates: start: 20010615
  2. TAXOTERE [Concomitant]
  3. CISPLATIN [Concomitant]
  4. NAVELBINE [Concomitant]

REACTIONS (1)
  - MYELODYSPLASTIC SYNDROME [None]
